FAERS Safety Report 5266014-7 (Version None)
Quarter: 2007Q1

REPORT INFORMATION
  Report Type: 
  Country: None (occurrence: None)
  Receive Date: 20070315
  Receipt Date: 20070306
  Transmission Date: 20070707
  Serious: Yes (Other)
  Sender: FDA-Public Use
  Company Number: US-KINGPHARMUSA00001-K200401125

PATIENT

DRUGS (11)
  1. ALTACE [Suspect]
     Indication: HYPERTENSION
     Dosage: 10 MG, QD
     Route: 048
     Dates: start: 19980101
  2. NPH INSULIN [Suspect]
     Indication: DIABETES MELLITUS NON-INSULIN-DEPENDENT
     Dosage: 85 U, QD
     Route: 058
     Dates: start: 20010529
  3. RHOTRAL [Concomitant]
     Dosage: 100 MG, QD
     Route: 048
  4. FLOVENT [Concomitant]
  5. NOVASEN [Concomitant]
     Dosage: 325 MG, QD
     Route: 048
     Dates: start: 19980101
  6. GLYCERYL TRINITRATE [Concomitant]
     Indication: ANGINA PECTORIS
     Dosage: .4 MG, UNK
     Dates: start: 19980101
  7. PENTOXIFYLLINE [Concomitant]
     Dosage: 400 MG, QD
     Route: 048
     Dates: start: 20010101
  8. SALVENT [Concomitant]
     Indication: ASTHMA
     Dosage: .2 %, UNK
  9. ZOCOR [Concomitant]
     Indication: HYPERCHOLESTEROLAEMIA
     Dosage: 40 MG, QD
     Route: 048
     Dates: start: 19980101
  10. SALBUTAMOL [Concomitant]
     Indication: ASTHMA
     Dosage: 100 UG, QD
  11. ACETYLCYSTEINE [Concomitant]
     Indication: ASTHMA
     Dosage: 200 MG/ML, UNK
     Dates: start: 20040201

REACTIONS (4)
  - COMA [None]
  - CONFUSIONAL STATE [None]
  - HYPOGLYCAEMIA [None]
  - HYPOGLYCAEMIC ENCEPHALOPATHY [None]
